FAERS Safety Report 4686587-2 (Version None)
Quarter: 2005Q2

REPORT INFORMATION
  Report Type: 
  Country: None (occurrence: None)
  Receive Date: 20050607
  Receipt Date: 20050524
  Transmission Date: 20051028
  Serious: Yes (Disabling, Other)
  Sender: FDA-Public Use
  Company Number: 200415589BCC

PATIENT
  Age: 60 Year
  Sex: Male
  Weight: 113.3993 kg

DRUGS (9)
  1. ALEVE [Suspect]
     Indication: HEADACHE
     Dosage: 440 MG, BID, ORAL
     Route: 048
     Dates: start: 20041112, end: 20041115
  2. ASPIRIN [Suspect]
     Dosage: QD
  3. METOPROLOL [Concomitant]
  4. GEMFIBROZIL [Concomitant]
  5. LIPITOR [Concomitant]
  6. ACTOS [Concomitant]
  7. PRANDIN [Concomitant]
  8. ACCUPRIL [Concomitant]
  9. METFORMIN HCL [Concomitant]

REACTIONS (4)
  - DEAFNESS TRANSITORY [None]
  - POOR QUALITY DRUG ADMINISTERED [None]
  - SINUSITIS [None]
  - TINNITUS [None]
